FAERS Safety Report 5700210 (Version 1)
Quarter: 2020Q3

REPORT INFORMATION
  Report Type: Report from Study
  Country: US (occurrence: US)
  Receive Date: 20041222
  Receipt Date: 20041222
  Transmission Date: 20201105
  Serious: Yes (Hospitalization)
  Sender: FDA-Public Use
  Company Number: US-JNJFOC-20041200611

PATIENT
  Age: 70 Year
  Sex: Male
  Weight: 109 kg

DRUGS (15)
  1. COREG [Concomitant]
     Active Substance: CARVEDILOL
     Route: 049
  2. SYNTHROID [Concomitant]
     Active Substance: LEVOTHYROXINE SODIUM
     Indication: HYPOTHYROIDISM
     Route: 049
  3. XANAX [Concomitant]
     Active Substance: ALPRAZOLAM
     Route: 049
  4. LASIX [Concomitant]
     Active Substance: FUROSEMIDE
     Route: 049
  5. DIGOXIN. [Concomitant]
     Active Substance: DIGOXIN
     Indication: CORONARY ARTERY DISEASE
     Route: 049
  6. CENTRIUM [Concomitant]
     Route: 049
  7. CENTRIUM [Concomitant]
     Route: 049
  8. NESIRITIDE [Suspect]
     Active Substance: NESIRITIDE
     Route: 042
  9. COUMADIN [Concomitant]
     Active Substance: WARFARIN SODIUM
     Indication: CORONARY ARTERY DISEASE
     Route: 049
  10. VASOTEC [Concomitant]
     Active Substance: ENALAPRIL MALEATE
     Route: 049
  11. LIPITOR [Concomitant]
     Active Substance: ATORVASTATIN CALCIUM
     Indication: CORONARY ARTERY DISEASE
     Route: 049
  12. AMIODARONE [Concomitant]
     Active Substance: AMIODARONE
     Indication: ATRIAL FIBRILLATION
     Route: 049
  13. ZOLOFT [Concomitant]
     Active Substance: SERTRALINE HYDROCHLORIDE
     Indication: DEPRESSION
     Route: 049
  14. NEURONTIN [Concomitant]
     Active Substance: GABAPENTIN
     Route: 049
  15. NESIRITIDE [Suspect]
     Active Substance: NESIRITIDE
     Route: 042

REACTIONS (6)
  - Platelet count decreased [None]
  - Blood urea increased [None]
  - Erythema [Recovered/Resolved]
  - Blood glucose increased [None]
  - Pyrexia [Recovered/Resolved]
  - Blood creatinine increased [None]

NARRATIVE: CASE EVENT DATE: 20041129
